FAERS Safety Report 24857174 (Version 2)
Quarter: 2025Q3

REPORT INFORMATION
  Report Type: Report from Study
  Country: KR (occurrence: KR)
  Receive Date: 20250117
  Receipt Date: 20250707
  Transmission Date: 20251020
  Serious: Yes (Other)
  Sender: PFIZER
  Company Number: KR-PFIZER INC-202500008808

PATIENT
  Sex: Female

DRUGS (9)
  1. PACLITAXEL [Suspect]
     Active Substance: PACLITAXEL
     Indication: Breast cancer female
     Dates: start: 20231219, end: 20231219
  2. CARBOPLATIN [Suspect]
     Active Substance: CARBOPLATIN
     Indication: Breast cancer female
     Dates: start: 20231219, end: 20231219
  3. CARBOPLATIN [Suspect]
     Active Substance: CARBOPLATIN
     Dates: start: 20240109, end: 20240109
  4. CARBOPLATIN [Suspect]
     Active Substance: CARBOPLATIN
     Dates: start: 20240131, end: 20240131
  5. CARBOPLATIN [Suspect]
     Active Substance: CARBOPLATIN
     Dates: start: 20240221, end: 20240221
  6. PACLITAXEL [Suspect]
     Active Substance: PACLITAXEL
     Indication: Breast cancer female
     Dates: start: 20240109, end: 20240109
  7. PACLITAXEL [Suspect]
     Active Substance: PACLITAXEL
     Dates: start: 20240131, end: 20240131
  8. PACLITAXEL [Suspect]
     Active Substance: PACLITAXEL
     Dates: start: 20240207, end: 20240207
  9. PACLITAXEL [Suspect]
     Active Substance: PACLITAXEL
     Dates: start: 20240306, end: 20240306

REACTIONS (4)
  - Red blood cell transfusion [Recovered/Resolved]
  - Radiotherapy [Recovered/Resolved]
  - Kinesitherapy [Recovered/Resolved]
  - Inappropriate schedule of product administration [Unknown]

NARRATIVE: CASE EVENT DATE: 20240109
